FAERS Safety Report 25363368 (Version 1)
Quarter: 2025Q2

REPORT INFORMATION
  Report Type: Spontaneous
  Country: JP (occurrence: JP)
  Receive Date: 20250527
  Receipt Date: 20250527
  Transmission Date: 20250717
  Serious: Yes (Hospitalization)
  Sender: ELI LILLY AND COMPANY
  Company Number: JP-ELI_LILLY_AND_COMPANY-JP202505014851

PATIENT
  Age: 23 Year
  Sex: Female

DRUGS (2)
  1. OLUMIANT [Suspect]
     Active Substance: BARICITINIB
     Indication: Atopy
     Dosage: 4 MG, DAILY
     Route: 048
  2. OLUMIANT [Suspect]
     Active Substance: BARICITINIB
     Indication: Systemic lupus erythematosus

REACTIONS (3)
  - Dermatitis atopic [Unknown]
  - Systemic lupus erythematosus [Unknown]
  - Renal impairment [Recovered/Resolved]
